FAERS Safety Report 18394604 (Version 1)
Quarter: 2020Q4

REPORT INFORMATION
  Report Type: Spontaneous
  Country: FR (occurrence: FR)
  Receive Date: 20201017
  Receipt Date: 20201017
  Transmission Date: 20210114
  Serious: Yes (Hospitalization)
  Sender: FDA-Public Use
  Company Number: NVSC2020FR275824

PATIENT
  Age: 51 Year
  Sex: Male

DRUGS (8)
  1. METOCLOPRAMIDE. [Concomitant]
     Active Substance: METOCLOPRAMIDE
     Indication: NAUSEA
     Dosage: UNK
     Route: 065
     Dates: start: 202005
  2. INDAPAMIDE. [Concomitant]
     Active Substance: INDAPAMIDE
     Indication: HYPERTENSION
     Dosage: UNK
     Route: 065
     Dates: start: 2016
  3. GEMCITABINE. [Suspect]
     Active Substance: GEMCITABINE
     Indication: BLADDER TRANSITIONAL CELL CARCINOMA
     Dosage: 1000 MG/M2, QD (INTRAVENOUS INFUSION OVER 30 MINUTES ON DAYS 1 AND 8 OF EACH 21-DAY CYCLE, DAILY)
     Route: 041
     Dates: start: 20200409, end: 20200807
  4. AVELUMAB [Suspect]
     Active Substance: AVELUMAB
     Indication: BLADDER TRANSITIONAL CELL CARCINOMA
     Dosage: DURATION OF EACH CYCLE WAS 3 WEEKS
     Route: 065
  5. DIFFU K [Concomitant]
     Active Substance: POTASSIUM CHLORIDE
     Indication: NAUSEA
     Dosage: UNK
     Route: 065
     Dates: start: 20200619
  6. CISPLATIN. [Suspect]
     Active Substance: CISPLATIN
     Indication: BLADDER TRANSITIONAL CELL CARCINOMA
     Dosage: 70 MG/M2, QD (70 MG/M2 AS A SLOW INTRAVENOUS INFUSION OVER 2 TO 4 HOURS ON DAY 1 OF EACH 21-DAY CYCL
     Route: 041
     Dates: start: 20200409
  7. FUNGIZONE [Concomitant]
     Active Substance: AMPHOTERICIN B
     Indication: NAUSEA
     Dosage: UNK
     Route: 065
     Dates: start: 20200619
  8. CARBOPLATIN. [Suspect]
     Active Substance: CARBOPLATIN
     Indication: BLADDER TRANSITIONAL CELL CARCINOMA
     Dosage: UNK UNK, QD
     Route: 042
     Dates: start: 20200709, end: 20200807

REACTIONS (2)
  - Sepsis [Not Recovered/Not Resolved]
  - Off label use [Unknown]

NARRATIVE: CASE EVENT DATE: 20200825
